FAERS Safety Report 25327532 (Version 1)
Quarter: 2025Q2

REPORT INFORMATION
  Report Type: Spontaneous
  Country: ES (occurrence: ES)
  Receive Date: 20250517
  Receipt Date: 20250517
  Transmission Date: 20250717
  Serious: Yes (Death, Other)
  Sender: AMGEN
  Company Number: ES-AMGEN-ESPSP2025094244

PATIENT

DRUGS (1)
  1. BLINATUMOMAB [Suspect]
     Active Substance: BLINATUMOMAB
     Indication: Acute lymphocytic leukaemia recurrent
     Route: 065

REACTIONS (9)
  - Acute lymphocytic leukaemia recurrent [Fatal]
  - Acute graft versus host disease [Fatal]
  - Adenovirus infection [Fatal]
  - Sepsis [Fatal]
  - Cytokine release syndrome [Fatal]
  - Venoocclusive liver disease [Unknown]
  - Chronic graft versus host disease [Unknown]
  - Human herpesvirus 6 infection [Unknown]
  - Cytomegalovirus infection [Unknown]
